FAERS Safety Report 20657472 (Version 1)
Quarter: 2022Q1

REPORT INFORMATION
  Report Type: Spontaneous
  Country: US (occurrence: US)
  Receive Date: 20220331
  Receipt Date: 20220331
  Transmission Date: 20220423
  Serious: No
  Sender: FDA-Public Use
  Company Number: US-BRISTOL-MYERS SQUIBB COMPANY-2022-011715

PATIENT
  Age: 20 Year
  Sex: Female
  Weight: 94.35 kg

DRUGS (1)
  1. ELIQUIS [Suspect]
     Active Substance: APIXABAN
     Indication: Deep vein thrombosis
     Dosage: DOSE : 10 MG;     FREQ : TWICE DAILY
     Route: 048
     Dates: start: 20220322

REACTIONS (1)
  - Pain in extremity [Unknown]
